FAERS Safety Report 4776608-0 (Version None)
Quarter: 2005Q3

REPORT INFORMATION
  Report Type: 
  Country: None (occurrence: None)
  Receive Date: 20050915
  Receipt Date: 20050913
  Transmission Date: 20060218
  Serious: Yes (Hospitalization)
  Sender: FDA-Public Use
  Company Number: 216439

PATIENT
  Age: 77 Year
  Sex: Male

DRUGS (5)
  1. MABTHERA(RITUXIMAB) CONC FOR SOLUTION FOR INFUSION [Suspect]
     Indication: NON-HODGKIN'S LYMPHOMA
  2. CYCLOPHOSPHAMIDE [Concomitant]
  3. VINCRISTINE [Concomitant]
  4. DOXORUBICIN HYDROCHLORIDE [Concomitant]
  5. PREDNISONE [Concomitant]

REACTIONS (4)
  - CEREBRAL DISORDER [None]
  - DRUG INEFFECTIVE [None]
  - IIIRD NERVE PARALYSIS [None]
  - TOXOPLASMOSIS [None]
